FAERS Safety Report 10167533 (Version 1)
Quarter: 2014Q2

REPORT INFORMATION
  Report Type: Report from Study
  Country: US (occurrence: US)
  Receive Date: 20140512
  Receipt Date: 20140512
  Transmission Date: 20141212
  Serious: Yes (Life-Threatening, Hospitalization)
  Sender: FDA-Public Use
  Company Number: US-JNJFOC-20140506543

PATIENT
  Age: 76 Year
  Sex: Male
  Weight: 54.4 kg

DRUGS (1)
  1. IMBRUVICA [Suspect]
     Indication: CHRONIC LYMPHOCYTIC LEUKAEMIA
     Route: 048
     Dates: start: 20140415

REACTIONS (6)
  - Cardiac arrest [Recovered/Resolved]
  - Fungal sepsis [Unknown]
  - Muscle spasms [Unknown]
  - Blood sodium decreased [Unknown]
  - Pyrexia [Unknown]
  - Blood potassium increased [Unknown]
